FAERS Safety Report 24569634 (Version 2)
Quarter: 2024Q4

REPORT INFORMATION
  Report Type: Spontaneous
  Country: FR (occurrence: FR)
  Receive Date: 20241031
  Receipt Date: 20241226
  Transmission Date: 20250115
  Serious: Yes (Death, Other)
  Sender: BAXTER
  Company Number: FR-BAXTER-2024BAX025612

PATIENT
  Age: 62 Year
  Sex: Female
  Weight: 85 kg

DRUGS (25)
  1. PROPOFOL [Suspect]
     Active Substance: PROPOFOL
     Indication: Sedation
     Dosage: 2% 150 MG/H
     Route: 042
  2. PROPOFOL [Suspect]
     Active Substance: PROPOFOL
     Dosage: MAINTANIED AT SAME DOSAGES
     Route: 042
  3. PROPOFOL [Suspect]
     Active Substance: PROPOFOL
     Dosage: 300 MG/H
     Route: 042
  4. PROPOFOL [Suspect]
     Active Substance: PROPOFOL
     Dosage: 48,000 MG OF PROPOFOL OVER 8 DAYS OR 250 MG/H ON AVERAGE
     Route: 042
  5. MIDAZOLAM [Concomitant]
     Active Substance: MIDAZOLAM
     Indication: Sedative therapy
     Dosage: 4 MG/H
     Route: 065
  6. MIDAZOLAM [Concomitant]
     Active Substance: MIDAZOLAM
     Dosage: IMMEDIATE POSTOPERATIVE PERIOD MIDAZOLAM 4 MG/H
     Route: 065
  7. MIDAZOLAM [Concomitant]
     Active Substance: MIDAZOLAM
     Dosage: MAINTANIED AT SAME DOSAGES
     Route: 065
  8. MIDAZOLAM [Concomitant]
     Active Substance: MIDAZOLAM
     Dosage: 20 MG/H
     Route: 065
  9. MIDAZOLAM [Concomitant]
     Active Substance: MIDAZOLAM
     Dosage: 28 MG/H
     Route: 065
  10. SUFENTANIL [Concomitant]
     Active Substance: SUFENTANIL
     Indication: Sedative therapy
     Dosage: 20 MICROGRAMS/H
     Route: 065
  11. SUFENTANIL [Concomitant]
     Active Substance: SUFENTANIL
     Dosage: IMMEDIATE POSTOPERATIVE PERIOD 20 MICROGRAMS/H
     Route: 065
  12. SUFENTANIL [Concomitant]
     Active Substance: SUFENTANIL
     Dosage: MAINTANIED AT SAME DOSAGES
     Route: 065
  13. KETAMINE [Concomitant]
     Active Substance: KETAMINE
     Indication: Sedation
     Dosage: AFTER 48 HOURS OF MANAGEMENT AT 200 MG/H
     Route: 065
  14. KETAMINE [Concomitant]
     Active Substance: KETAMINE
     Dosage: 300 MG/H
     Route: 065
  15. CISATRACURIUM [Concomitant]
     Active Substance: CISATRACURIUM
     Indication: Neuromuscular blocking therapy
     Dosage: 20 MG/H AFTER 72 HOURS
     Route: 065
  16. CISATRACURIUM [Concomitant]
     Active Substance: CISATRACURIUM
     Dosage: 40 MG/H
     Route: 065
  17. CISATRACURIUM [Concomitant]
     Active Substance: CISATRACURIUM
     Dosage: 45 MG/H
     Route: 065
  18. MILRINONE [Concomitant]
     Active Substance: MILRINONE
     Indication: Vasospasm
     Dosage: 1 MICROGRAM/KG/MIN
     Route: 065
  19. OXYGEN [Concomitant]
     Active Substance: OXYGEN
     Route: 065
  20. NOREPINEPHRINE [Concomitant]
     Active Substance: NOREPINEPHRINE\NOREPINEPHRINE BITARTRATE
     Indication: Shock
     Dosage: UP TO 1.5 MICROGRAMS/KG/MIN
     Route: 065
  21. PIPERACILLIN AND TAZOBACTAM [Concomitant]
     Active Substance: PIPERACILLIN SODIUM\TAZOBACTAM SODIUM
     Indication: Septic shock
     Route: 065
  22. PIPERACILLIN AND TAZOBACTAM [Concomitant]
     Active Substance: PIPERACILLIN SODIUM\TAZOBACTAM SODIUM
     Indication: Pneumonia
  23. AMIKACIN [Concomitant]
     Active Substance: AMIKACIN
     Indication: Septic shock
     Dosage: UNK
     Route: 065
  24. AMIKACIN [Concomitant]
     Active Substance: AMIKACIN
     Indication: Pneumonia
  25. THIOPENTAL [Concomitant]
     Active Substance: THIOPENTAL
     Route: 065

REACTIONS (12)
  - Multiple organ dysfunction syndrome [Fatal]
  - Propofol infusion syndrome [Unknown]
  - Acute kidney injury [Unknown]
  - Metabolic acidosis [Unknown]
  - Hyperkalaemia [Unknown]
  - Haemodynamic instability [Unknown]
  - Hepatic failure [Unknown]
  - Hypoglycaemia [Unknown]
  - Hypertriglyceridaemia [Unknown]
  - Rhabdomyolysis [Unknown]
  - Bradycardia [Unknown]
  - Cardiac arrest [Unknown]
